FAERS Safety Report 15810372 (Version 1)
Quarter: 2019Q1

REPORT INFORMATION
  Report Type: Spontaneous
  Country: US (occurrence: US)
  Receive Date: 20190111
  Receipt Date: 20190111
  Transmission Date: 20190417
  Serious: Yes (Other)
  Sender: FDA-Public Use
  Company Number: US-ROCHE-2205075

PATIENT
  Age: 21 Month
  Sex: Female

DRUGS (3)
  1. ALGLUCOSIDASE ALFA [Concomitant]
     Active Substance: ALGLUCOSIDASE ALFA
  2. RITUXIMAB. [Suspect]
     Active Substance: RITUXIMAB
     Indication: GLYCOGEN STORAGE DISEASE TYPE II
     Route: 065
  3. METHOTREXATE. [Suspect]
     Active Substance: METHOTREXATE
     Indication: GLYCOGEN STORAGE DISEASE TYPE II
     Route: 065

REACTIONS (1)
  - Clostridium difficile infection [Recovered/Resolved]
